FAERS Safety Report 8493972-X (Version None)
Quarter: 2012Q3

REPORT INFORMATION
  Report Type: 
  Country: None (occurrence: None)
  Receive Date: 20120709
  Receipt Date: 20120705
  Transmission Date: 20120928
  Serious: Yes (Death)
  Sender: FDA-Public Use
  Company Number: IT-BAYER-2012-067338

PATIENT
  Age: 63 Year
  Sex: Male

DRUGS (6)
  1. VALPROATE SODIUM [Concomitant]
  2. ASPIRIN [Suspect]
     Indication: AORTIC ANEURYSM
     Dosage: 100 MG, QD
     Route: 048
     Dates: start: 20110101, end: 20120621
  3. OMEPRAZOLE [Concomitant]
  4. DIAZEPAM [Concomitant]
  5. CHLORPROMAZINE HCL [Concomitant]
  6. CLOPIXOL [Concomitant]

REACTIONS (1)
  - INTRAVENTRICULAR HAEMORRHAGE [None]
